FAERS Safety Report 9154360 (Version 1)
Quarter: 2013Q1

REPORT INFORMATION
  Report Type: Spontaneous
  Country: FR (occurrence: None)
  Receive Date: 20130205
  Receipt Date: 20130205
  Transmission Date: 20140127
  Serious: Yes (Hospitalization)
  Sender: FDA-Public Use
  Company Number: 1583229

PATIENT
  Age: 65 Year
  Sex: Male

DRUGS (10)
  1. PAMIDRONIC ACID [Suspect]
     Indication: DIFFUSE LARGE B-CELL LYMPHOMA STAGE IV
     Dosage: 1D
     Route: 041
     Dates: start: 20121126, end: 20121126
  2. RITUXIMAB [Suspect]
     Indication: DIFFUSE LARGE B-CELL LYMPHOMA STAGE IV
     Dosage: 1 D
     Route: 042
     Dates: start: 20121126, end: 20121126
  3. BLEOMYCINE [Concomitant]
  4. METHOTREXATE [Concomitant]
  5. VINDESINE [Concomitant]
  6. RASBURICASE [Concomitant]
  7. PLAQUENIL [Concomitant]
  8. DOXORUBICIN [Concomitant]
  9. CYCLOPHOSPHAMIDE [Concomitant]
  10. PREDNISONE [Concomitant]

REACTIONS (12)
  - Hyperthermia [None]
  - Infusion related reaction [None]
  - Bronchospasm [None]
  - Infusion related reaction [None]
  - Livedo reticularis [None]
  - Blood urea increased [None]
  - Platelet count decreased [None]
  - Blood phosphorus increased [None]
  - Tumour lysis syndrome [None]
  - Blood lactate dehydrogenase increased [None]
  - Coagulopathy [None]
  - Oncologic complication [None]
